FAERS Safety Report 20884234 (Version 1)
Quarter: 2022Q2

REPORT INFORMATION
  Report Type: Spontaneous
  Country: HR (occurrence: HR)
  Receive Date: 20220527
  Receipt Date: 20220527
  Transmission Date: 20220721
  Serious: Yes (Other)
  Sender: FDA-Public Use
  Company Number: None

PATIENT
  Age: 18 Year
  Sex: Female

DRUGS (3)
  1. ZOLOFT [Suspect]
     Active Substance: SERTRALINE HYDROCHLORIDE
     Dosage: 1500 MG, 1X/DAY (SERTRALIN 30 TBL)
     Route: 048
     Dates: start: 20220412, end: 20220412
  2. ALPRAZOLAM [Suspect]
     Active Substance: ALPRAZOLAM
     Dosage: UNK
     Route: 048
     Dates: start: 20220412, end: 20220412
  3. SULPIRIDE [Suspect]
     Active Substance: SULPIRIDE
     Dosage: UNK
     Route: 048
     Dates: start: 20220412, end: 20220412

REACTIONS (4)
  - Intentional overdose [Recovered/Resolved]
  - Tremor [Unknown]
  - Suicide attempt [Recovered/Resolved]
  - Hypertension [Unknown]

NARRATIVE: CASE EVENT DATE: 20220412
